FAERS Safety Report 5949681-1 (Version None)
Quarter: 2008Q4

REPORT INFORMATION
  Report Type: 
  Country: None (occurrence: None)
  Receive Date: 20081021
  Receipt Date: 20080320
  Transmission Date: 20090506
  Serious: Yes (Other)
  Sender: FDA-Public Use
  Company Number: HQWYE891813JUL06

PATIENT
  Age: 62 Year
  Sex: Female
  Weight: 63.56 kg

DRUGS (1)
  1. PREMARIN [Suspect]
     Indication: MENOPAUSE
     Dosage: 84 MOS. (7 YEARS)
     Dates: start: 19950101, end: 20020711

REACTIONS (1)
  - BREAST CANCER [None]
